FAERS Safety Report 4598324-0 (Version None)
Quarter: 2005Q1

REPORT INFORMATION
  Report Type: 
  Country: None (occurrence: None)
  Receive Date: 20050204
  Receipt Date: 20040713
  Transmission Date: 20050727
  Serious: Yes (Other)
  Sender: FDA-Public Use
  Company Number: PHEH2004US06696

PATIENT
  Age: 46 Year
  Sex: Male
  Weight: 84.4 kg

DRUGS (2)
  1. CLOZARIL [Suspect]
     Dosage: 800 MG/DAY, ORAL
     Route: 048
     Dates: start: 19990101
  2. COGENTIN [Concomitant]

REACTIONS (4)
  - HYPOTENSION [None]
  - STOMACH DISCOMFORT [None]
  - THINKING ABNORMAL [None]
  - WHITE BLOOD CELL COUNT DECREASED [None]
